FAERS Safety Report 6423962-X (Version None)
Quarter: 2009Q4

REPORT INFORMATION
  Report Type: 
  Country: None (occurrence: None)
  Receive Date: 20091102
  Receipt Date: 20091027
  Transmission Date: 20100525
  Serious: Yes (Death, Other)
  Sender: FDA-Public Use
  Company Number: PHHY2009FR46721

PATIENT
  Age: 44 Year
  Sex: Male

DRUGS (4)
  1. CYCLOSPORINE [Suspect]
     Indication: STEM CELL TRANSPLANT
  2. MYCOPHENOLATE MOFETIL [Suspect]
     Indication: STEM CELL TRANSPLANT
  3. FLUDARABINE [Concomitant]
     Indication: BONE MARROW CONDITIONING REGIMEN
     Dosage: 30 MG/M2, UNK
  4. IRRADIATION [Concomitant]
     Indication: BONE MARROW CONDITIONING REGIMEN
     Dosage: 2 GY, UNK

REACTIONS (8)
  - ADULT T-CELL LYMPHOMA/LEUKAEMIA RECURRENT [None]
  - BLOOD STEM CELL TRANSPLANT FAILURE [None]
  - HTLV-1 TEST POSITIVE [None]
  - HYPERCALCAEMIA [None]
  - INFECTION [None]
  - LYMPHADENOPATHY [None]
  - LYMPHOCYTOSIS [None]
  - SPLENOMEGALY [None]
